FAERS Safety Report 9486822 (Version 1)
Quarter: 2013Q3

REPORT INFORMATION
  Report Type: Spontaneous
  Country: US (occurrence: None)
  Receive Date: 20130827
  Receipt Date: 20130827
  Transmission Date: 20140515
  Serious: Yes (Other)
  Sender: FDA-Public Use
  Company Number: 163-20785-13082149

PATIENT
  Age: 59 Year
  Sex: Female

DRUGS (11)
  1. THALOMID [Suspect]
     Indication: PLASMA CELL MYELOMA
     Dosage: 100 MG, 1 IN 1 D, PO
     Route: 048
     Dates: start: 200812
  2. ACARBOSE (ACARBOSE) (TABLETS) [Concomitant]
  3. HYDROMORPHONE (HYDROMORPHOSE) (TABLETS) [Concomitant]
  4. DEXAMETHASONE (DEXAMETHASONE) (TABLETS) [Concomitant]
  5. ENALARPRIL-HCTZ (VASERETIC) (TABLETS) [Concomitant]
  6. GLYBURIDE-METHFORMIN (GLIBOMET) (TABLETS) [Concomitant]
  7. NEXIUM (ESOMEPRAZOLE) (CAPSULES) [Concomitant]
  8. VITAMIN D (ERGOCALCIFEROL) (TABLETS) [Concomitant]
  9. VITAMIN E (TOCOPHEROL) [Concomitant]
  10. CALCIUM (CALCIUM) (CHEWABLE TABLET) [Concomitant]
  11. BABY ASPIRIN (ACETYLSALICYLIC ACID) (ENTERIC-COATED TABLET) [Concomitant]

REACTIONS (3)
  - Pulmonary thrombosis [None]
  - Road traffic accident [None]
  - Drug dose omission [None]
